FAERS Safety Report 10403565 (Version 3)
Quarter: 2014Q4

REPORT INFORMATION
  Report Type: Report from Study
  Country: IT (occurrence: IT)
  Receive Date: 20140822
  Receipt Date: 20141011
  Transmission Date: 20150528
  Serious: Yes (Life-Threatening, Hospitalization, Other)
  Sender: FDA-Public Use
  Company Number: IT-ASTRAZENECA-2014SE11727

PATIENT
  Age: 83 Year
  Sex: Female

DRUGS (7)
  1. PANTOPRAZOLE [Concomitant]
     Active Substance: PANTOPRAZOLE SODIUM
     Indication: PROPHYLAXIS AGAINST GASTROINTESTINAL ULCER
     Dates: start: 20131019
  2. ENOXAPARIN [Concomitant]
     Active Substance: ENOXAPARIN
     Indication: ISCHAEMIC CARDIOMYOPATHY
     Dates: start: 20131023, end: 20131028
  3. ENOXAPARIN [Concomitant]
     Active Substance: ENOXAPARIN
     Indication: THROMBOSIS PROPHYLAXIS
     Dates: start: 20131023, end: 20131028
  4. TICAGRELOR [Suspect]
     Active Substance: TICAGRELOR
     Indication: ACUTE CORONARY SYNDROME
     Route: 048
     Dates: start: 20131022, end: 20140213
  5. ASPIRIN. [Suspect]
     Active Substance: ASPIRIN
     Indication: ACUTE CORONARY SYNDROME
     Route: 048
     Dates: start: 20131019, end: 20131125
  6. ENOXAPARIN [Concomitant]
     Active Substance: ENOXAPARIN
     Indication: ISCHAEMIC CARDIOMYOPATHY
     Dates: start: 20131021, end: 20131023
  7. ENOXAPARIN [Concomitant]
     Active Substance: ENOXAPARIN
     Indication: THROMBOSIS PROPHYLAXIS
     Dates: start: 20131021, end: 20131023

REACTIONS (2)
  - Anaemia [Recovered/Resolved]
  - Catheter site haemorrhage [Recovered/Resolved]

NARRATIVE: CASE EVENT DATE: 20131022
